FAERS Safety Report 21594919 (Version 1)
Quarter: 2022Q4

REPORT INFORMATION
  Report Type: Spontaneous
  Country: FR (occurrence: FR)
  Receive Date: 20221115
  Receipt Date: 20221115
  Transmission Date: 20230113
  Serious: Yes (Hospitalization, Other)
  Sender: FDA-Public Use
  Company Number: None

PATIENT
  Age: 39 Year
  Sex: Male
  Weight: 63 kg

DRUGS (2)
  1. AZITHROMYCIN [Suspect]
     Active Substance: AZITHROMYCIN
     Indication: Bronchitis
     Dosage: 1000 MG, 1X/DAY
     Route: 048
     Dates: start: 20221010, end: 20221012
  2. BETAMETHASONE [Suspect]
     Active Substance: BETAMETHASONE
     Indication: Bronchitis
     Dosage: 6 MG, 1X/DAY
     Route: 048
     Dates: start: 20221010, end: 20221012

REACTIONS (3)
  - Atrial fibrillation [Recovered/Resolved]
  - Off label use [Unknown]
  - Product use issue [Unknown]

NARRATIVE: CASE EVENT DATE: 20221010
